FAERS Safety Report 24922528 (Version 1)
Quarter: 2025Q1

REPORT INFORMATION
  Report Type: Spontaneous
  Country: US (occurrence: None)
  Receive Date: 20250203
  Receipt Date: 20250203
  Transmission Date: 20250409
  Serious: Yes (Death)
  Sender: FDA-CTU
  Company Number: None

PATIENT
  Age: 72 Year
  Sex: Male
  Weight: 93.9 kg

DRUGS (3)
  1. LIFILEUCEL [Suspect]
     Active Substance: LIFILEUCEL
     Indication: Metastatic malignant melanoma
     Route: 042
     Dates: start: 20250128, end: 20250128
  2. FLUDARABINE [Suspect]
     Active Substance: FLUDARABINE PHOSPHATE
  3. CYCLOPHOSPHAMIDE [Suspect]
     Active Substance: CYCLOPHOSPHAMIDE

REACTIONS (17)
  - Pyrexia [None]
  - Diarrhoea [None]
  - Infection [None]
  - Infusion related reaction [None]
  - Chills [None]
  - Hypotension [None]
  - Cytokine release syndrome [None]
  - Renal impairment [None]
  - Myocardial injury [None]
  - Pericardial effusion malignant [None]
  - Cardiac tamponade [None]
  - Shock [None]
  - Metabolic acidosis [None]
  - Sepsis [None]
  - Myopericarditis [None]
  - Acute kidney injury [None]
  - Cardiac arrest [None]

NARRATIVE: CASE EVENT DATE: 20250129
